FAERS Safety Report 7417088-6 (Version None)
Quarter: 2011Q2

REPORT INFORMATION
  Report Type: 
  Country: None (occurrence: None)
  Receive Date: 20110415
  Receipt Date: 20110401
  Transmission Date: 20111010
  Serious: Yes (Life-Threatening)
  Sender: FDA-Public Use
  Company Number: RO-JNJFOC-20110400959

PATIENT
  Sex: Male

DRUGS (2)
  1. REMICADE [Suspect]
     Indication: ANKYLOSING SPONDYLITIS
     Route: 042
  2. DICLOFENAC [Concomitant]
     Indication: ANKYLOSING SPONDYLITIS
     Route: 048

REACTIONS (7)
  - ORTHOPNOEA [None]
  - DYSPNOEA [None]
  - INFUSION RELATED REACTION [None]
  - SUFFOCATION FEELING [None]
  - FLUSHING [None]
  - PRURITUS [None]
  - MALAISE [None]
